FAERS Safety Report 5736545-1 (Version None)
Quarter: 2008Q2

REPORT INFORMATION
  Report Type: 
  Country: None (occurrence: None)
  Receive Date: 20080513
  Receipt Date: 20080428
  Transmission Date: 20081010
  Serious: Yes (Death)
  Sender: FDA-Public Use
  Company Number: JP-ROCHE-563241

PATIENT
  Sex: Female

DRUGS (11)
  1. DENOSINE IV [Suspect]
     Indication: CYTOMEGALOVIRUS ENTEROCOLITIS
     Dosage: FORM REPORTED AS INFUSION
     Route: 042
     Dates: start: 20060808
  2. MAXIPIME [Suspect]
     Indication: DRUG USE FOR UNKNOWN INDICATION
     Route: 051
  3. PREDONINE [Suspect]
     Indication: DRUG USE FOR UNKNOWN INDICATION
     Route: 065
  4. ANAFRANIL [Suspect]
     Indication: DRUG USE FOR UNKNOWN INDICATION
     Route: 065
  5. LASIX [Suspect]
     Indication: DRUG USE FOR UNKNOWN INDICATION
     Route: 065
  6. HICALIQ [Concomitant]
     Indication: DRUG USE FOR UNKNOWN INDICATION
     Route: 042
  7. HICALIQ [Concomitant]
     Route: 042
  8. HICALIQ [Concomitant]
     Route: 042
  9. HICALIQ [Concomitant]
     Route: 042
  10. HICALIQ [Concomitant]
     Route: 042
  11. HICALIQ [Concomitant]
     Route: 042

REACTIONS (1)
  - LIVER DISORDER [None]
